FAERS Safety Report 21912269 (Version 1)
Quarter: 2023Q1

REPORT INFORMATION
  Report Type: Spontaneous
  Country: EG (occurrence: EG)
  Receive Date: 20230125
  Receipt Date: 20230125
  Transmission Date: 20230418
  Serious: Yes (Other)
  Sender: FDA-Public Use
  Company Number: EG-ELI_LILLY_AND_COMPANY-EG202301010031

PATIENT
  Age: 56 Year
  Sex: Female

DRUGS (8)
  1. HUMULIN 70/30 [Suspect]
     Active Substance: INSULIN HUMAN
     Indication: Diabetes mellitus
     Dosage: 40 U, DAILY
     Route: 058
     Dates: start: 2016
  2. HUMULIN 70/30 [Suspect]
     Active Substance: INSULIN HUMAN
     Dosage: 25 U, DAILY
     Route: 058
     Dates: start: 2016
  3. HUMULIN 70/30 [Suspect]
     Active Substance: INSULIN HUMAN
     Dosage: 44 U, DAILY
     Route: 058
  4. HUMULIN 70/30 [Suspect]
     Active Substance: INSULIN HUMAN
     Dosage: 50 U, DAILY
     Route: 058
  5. CELECOXIB [Suspect]
     Active Substance: CELECOXIB
     Indication: Product used for unknown indication
     Dosage: UNK UNK, BID
     Route: 065
     Dates: start: 202210, end: 202211
  6. MINERALS\VITAMINS [Suspect]
     Active Substance: MINERALS\VITAMINS
     Indication: Product used for unknown indication
     Dosage: UNK UNK, BID
     Route: 065
     Dates: start: 202210, end: 202211
  7. CEREBROLYSIN [Concomitant]
     Active Substance: CEREBROLYSIN
     Indication: Product used for unknown indication
     Dosage: UNK UNK, OTHER (1 IM INJECTION EVERY 3 DAYS)
     Dates: start: 202210
  8. METHYLTECHNO [Concomitant]
     Indication: Product used for unknown indication
     Dosage: UNK UNK, DAILY
     Dates: start: 202210

REACTIONS (3)
  - Diabetic coma [Not Recovered/Not Resolved]
  - Blood glucose increased [Recovered/Resolved]
  - Incorrect dose administered [Not Recovered/Not Resolved]

NARRATIVE: CASE EVENT DATE: 20221001
